FAERS Safety Report 6989557-4 (Version None)
Quarter: 2010Q3

REPORT INFORMATION
  Report Type: 
  Country: None (occurrence: None)
  Receive Date: 20100916
  Receipt Date: 20100108
  Transmission Date: 20110219
  Serious: Yes (Other)
  Sender: FDA-Public Use
  Company Number: US-PFIZER INC-2010004283

PATIENT
  Sex: Female
  Weight: 72.574 kg

DRUGS (14)
  1. LYRICA [Suspect]
     Indication: NEUROPATHY PERIPHERAL
     Dosage: ONE IN MORNING AND TWO AT BEDTIME
     Route: 048
     Dates: start: 20090101
  2. FLUOXETINE HYDROCHLORIDE [Concomitant]
     Indication: DEPRESSION
     Dosage: UNK
  3. SEROQUEL [Concomitant]
     Indication: SLEEP APNOEA SYNDROME
     Dosage: UNK
  4. GAS-X [Concomitant]
  5. VITAMIN B-12 [Concomitant]
  6. MULTI-VITAMINS [Concomitant]
     Dosage: UNK
  7. MECLIZINE [Concomitant]
     Indication: VERTIGO
     Dosage: UNK
  8. LAMOTRIGINE [Concomitant]
     Indication: CONVULSION
     Dosage: UNK
  9. ALPRAZOLAM [Concomitant]
     Dosage: UNK
  10. METHOCARBAMOL [Concomitant]
     Dosage: UNK
  11. BUTALBITAL [Concomitant]
     Indication: HEADACHE
     Dosage: UNK
  12. DILTIAZEM HYDROCHLORIDE [Concomitant]
     Dosage: 120 MG, UNK
  13. OMEPRAZOLE [Concomitant]
     Indication: DYSPEPSIA
     Dosage: UNK
  14. DONEPEZIL [Concomitant]
     Indication: MEMORY IMPAIRMENT

REACTIONS (4)
  - ARTHRALGIA [None]
  - DEPRESSION [None]
  - MENTAL DISORDER [None]
  - NERVOUS SYSTEM NEOPLASM [None]
